FAERS Safety Report 21663690 (Version 1)
Quarter: 2022Q4

REPORT INFORMATION
  Report Type: Spontaneous
  Country: GB (occurrence: GB)
  Receive Date: 20221130
  Receipt Date: 20221130
  Transmission Date: 20230113
  Serious: Yes (Hospitalization, Other)
  Sender: FDA-Public Use
  Company Number: None

PATIENT
  Sex: Male

DRUGS (1)
  1. EDOXABAN [Suspect]
     Active Substance: EDOXABAN
     Indication: Product used for unknown indication
     Dosage: UNK
     Route: 065

REACTIONS (6)
  - Diarrhoea [Unknown]
  - Faeces discoloured [Unknown]
  - Anaemia [Unknown]
  - Renal haemorrhage [Unknown]
  - Internal haemorrhage [Unknown]
  - Drug monitoring procedure not performed [Unknown]
